FAERS Safety Report 4873198-9 (Version None)
Quarter: 2005Q4

REPORT INFORMATION
  Report Type: 
  Country: None (occurrence: None)
  Receive Date: 20051201
  Receipt Date: 20050803
  Transmission Date: 20060501
  Serious: No
  Sender: FDA-Public Use
  Company Number: 2005PV000886

PATIENT
  Age: 62 Year
  Sex: Male
  Weight: 113.3993 kg

DRUGS (5)
  1. BYETTA [Suspect]
     Indication: DIABETES MELLITUS NON-INSULIN-DEPENDENT
     Dosage: 5 MCG, BID, SC
     Route: 058
     Dates: start: 20050802
  2. DIGOXIN [Concomitant]
  3. FORTIMET [Concomitant]
  4. VERAPAMIL [Concomitant]
  5. ASPIRIN [Concomitant]

REACTIONS (10)
  - ABDOMINAL PAIN LOWER [None]
  - DEFAECATION URGENCY [None]
  - DYSPEPSIA [None]
  - ERUCTATION [None]
  - FATIGUE [None]
  - FREQUENT BOWEL MOVEMENTS [None]
  - NAUSEA [None]
  - REGURGITATION OF FOOD [None]
  - SLEEP DISORDER [None]
  - VOMITING [None]
